FAERS Safety Report 12103703 (Version 2)
Quarter: 2016Q1

REPORT INFORMATION
  Report Type: Spontaneous
  Country: FI (occurrence: FI)
  Receive Date: 20160223
  Receipt Date: 20160302
  Transmission Date: 20160526
  Serious: Yes (Other)
  Sender: FDA-Public Use
  Company Number: FI-ROCHE-1714040

PATIENT
  Age: 12 Year
  Sex: Male

DRUGS (2)
  1. METOJECT [Concomitant]
     Active Substance: METHOTREXATE SODIUM
     Route: 065
     Dates: end: 201601
  2. ROACTEMRA [Suspect]
     Active Substance: TOCILIZUMAB
     Indication: JUVENILE IDIOPATHIC ARTHRITIS
     Route: 041
     Dates: end: 201511

REACTIONS (3)
  - Strabismus [Not Recovered/Not Resolved]
  - Postoperative wound infection [Unknown]
  - Tooth infection [Unknown]

NARRATIVE: CASE EVENT DATE: 2015
